FAERS Safety Report 5052349-X (Version None)
Quarter: 2006Q3

REPORT INFORMATION
  Report Type: 
  Country: None (occurrence: None)
  Receive Date: 20060717
  Receipt Date: 20060706
  Transmission Date: 20061208
  Serious: Yes (Other)
  Sender: FDA-Public Use
  Company Number: ES-JNJFOC-20060202941

PATIENT
  Age: 33 Year
  Sex: Female

DRUGS (4)
  1. TRAMADOL HCL [Suspect]
     Indication: FIBROMYALGIA
     Route: 048
  2. PAROXETINE HCL [Concomitant]
     Indication: DEPRESSION
  3. PARACETAMOL [Concomitant]
     Indication: FIBROMYALGIA
  4. IMIPRAMINE [Concomitant]
     Indication: DEPRESSION

REACTIONS (1)
  - ALVEOLITIS ALLERGIC [None]
